FAERS Safety Report 9120076 (Version 1)
Quarter: 2013Q1

REPORT INFORMATION
  Report Type: Spontaneous
  Country: JP (occurrence: JP)
  Receive Date: 20130226
  Receipt Date: 20130226
  Transmission Date: 20140127
  Serious: Yes (Disabling)
  Sender: FDA-Public Use
  Company Number: PHHY2013JP003545

PATIENT
  Age: 85 Year
  Sex: Female

DRUGS (14)
  1. RIVASTIGMIN [Suspect]
     Indication: DEMENTIA ALZHEIMER^S TYPE
     Dosage: 4.5 MG DAILY
     Route: 062
     Dates: start: 20120620, end: 20120702
  2. RIVASTIGMIN [Suspect]
     Indication: DEMENTIA ALZHEIMER^S TYPE
     Dosage: 4.5 MG DAILY
     Route: 062
     Dates: start: 20120706, end: 20120719
  3. RIVASTIGMIN [Suspect]
     Dosage: 9 MG DAILY
     Route: 062
     Dates: start: 20120720, end: 20120819
  4. RIVASTIGMIN [Suspect]
     Dosage: 13.5  MG, DAILY
     Route: 062
     Dates: start: 20120820, end: 20120909
  5. RIVASTIGMIN [Suspect]
     Dosage: 18  MG, DAILY
     Route: 062
     Dates: start: 20120910, end: 20121202
  6. RIVASTIGMIN [Suspect]
     Dosage: 9MG, DAILY
     Route: 062
     Dates: start: 20121203, end: 20130204
  7. ARICEPT [Concomitant]
     Indication: DEMENTIA ALZHEIMER^S TYPE
     Dosage: UNK
     Dates: start: 20120703, end: 20120705
  8. TIARYL [Concomitant]
     Dosage: UNK
     Dates: start: 20120731
  9. MAGMITT [Concomitant]
  10. GASMOTIN [Concomitant]
  11. RABEPRAZOLE NA [Concomitant]
  12. EBRANTIL [Concomitant]
  13. PIPERACILLIN NA [Concomitant]
     Dosage: UNK
     Dates: start: 20121127, end: 20121130
  14. AMOXYCILLIN [Concomitant]
     Dosage: UNK
     Dates: start: 20121201, end: 20121204

REACTIONS (4)
  - Angle closure glaucoma [Unknown]
  - Visual acuity reduced [Unknown]
  - Blood cholinesterase decreased [Recovered/Resolved]
  - Wrong technique in drug usage process [Unknown]
